FAERS Safety Report 9699122 (Version 1)
Quarter: 2013Q4

REPORT INFORMATION
  Report Type: Spontaneous
  Country: US (occurrence: US)
  Receive Date: 20131120
  Receipt Date: 20131120
  Transmission Date: 20140711
  Serious: Yes (Other)
  Sender: FDA-Public Use
  Company Number: US-ABBVIE-13P-163-1171162-00

PATIENT
  Sex: Female

DRUGS (3)
  1. ADALIMUMAB [Suspect]
     Indication: PRODUCT USED FOR UNKNOWN INDICATION
  2. IMMUNOGLOBULIN I.V [Suspect]
     Indication: PRODUCT USED FOR UNKNOWN INDICATION
  3. ASPIRIN [Concomitant]
     Indication: PRODUCT USED FOR UNKNOWN INDICATION
     Dosage: LOW DOSE

REACTIONS (1)
  - Foetal death [Unknown]
